FAERS Safety Report 5378913-6 (Version None)
Quarter: 2007Q3

REPORT INFORMATION
  Report Type: 
  Country: None (occurrence: None)
  Receive Date: 20070705
  Receipt Date: 20070622
  Transmission Date: 20080115
  Serious: Yes (Hospitalization)
  Sender: FDA-Public Use
  Company Number: DE-AMGEN-US232071

PATIENT
  Age: 66 Year
  Sex: Female

DRUGS (2)
  1. ENBREL [Suspect]
     Indication: POLYARTHRITIS
     Route: 058
     Dates: start: 20040901, end: 20060801
  2. METHOTREXATE [Suspect]
     Indication: POLYARTHRITIS
     Route: 048
     Dates: start: 19840101, end: 20060801

REACTIONS (1)
  - PANCYTOPENIA [None]
